FAERS Safety Report 16359915 (Version 1)
Quarter: 2019Q2

REPORT INFORMATION
  Report Type: Spontaneous
  Country: US (occurrence: US)
  Receive Date: 20190419
  Receipt Date: 20190419
  Transmission Date: 20190711
  Serious: No
  Sender: FDA-Public Use
  Company Number: None

PATIENT
  Age: 60 Year
  Sex: Female

DRUGS (1)
  1. IMATINIB 400MG  TAB (X30) [Suspect]
     Active Substance: IMATINIB
     Dates: start: 201809

REACTIONS (2)
  - Nausea [None]
  - Pollakiuria [None]

NARRATIVE: CASE EVENT DATE: 20190419
